FAERS Safety Report 8981422 (Version 2)
Quarter: 2013Q1

REPORT INFORMATION
  Report Type: Spontaneous
  Country: US (occurrence: US)
  Receive Date: 20121221
  Receipt Date: 20130220
  Transmission Date: 20140127
  Serious: No
  Sender: FDA-Public Use
  Company Number: US-PFIZER INC-2012321401

PATIENT
  Age: 75 Year
  Sex: Female
  Weight: 75 kg

DRUGS (3)
  1. NORVASC [Suspect]
     Indication: HYPERTENSION
     Dosage: 5 MG, DAILY
     Dates: start: 2002
  2. NORVASC [Suspect]
     Dosage: 2.5 MG, DAILY
  3. NEXIUM [Concomitant]
     Indication: GASTRIC DISORDER
     Dosage: 40 MG DAILY

REACTIONS (4)
  - Local swelling [Recovered/Resolved]
  - Pyrexia [Recovering/Resolving]
  - Sleep disorder [Unknown]
  - Cough [Unknown]
